FAERS Safety Report 21146856 (Version 2)
Quarter: 2024Q2

REPORT INFORMATION
  Report Type: Spontaneous
  Country: GB (occurrence: GB)
  Receive Date: 20220729
  Receipt Date: 20240520
  Transmission Date: 20240715
  Serious: Yes (Hospitalization)
  Sender: FDA-Public Use
  Company Number: GB-TEVA-2022-GB-2059861

PATIENT
  Age: 63 Year
  Sex: Male

DRUGS (4)
  1. CISPLATIN [Suspect]
     Active Substance: CISPLATIN
     Indication: Squamous cell carcinoma of the tongue
     Dosage: DOSAGE TEXT: RECEIVED 2 CYCLES AS PART IF OF NEOADJUVANT CHEMOTHERAPY
     Route: 065
  2. CISPLATIN [Suspect]
     Active Substance: CISPLATIN
     Indication: Squamous cell carcinoma of the tongue
     Dosage: DOSAGE TEXT: SCHEDULED TO RECEIVE 2 CYCLES WITH RADIOTHERAPY
     Route: 065
  3. DOCETAXEL [Suspect]
     Active Substance: DOCETAXEL\DOCETAXEL ANHYDROUS
     Indication: Squamous cell carcinoma of the tongue
     Dosage: DOSAGE TEXT: RECEIVED 2 CYCLES OF CHEMOTHERAPY
     Route: 065
  4. FLUOROURACIL [Suspect]
     Active Substance: FLUOROURACIL
     Indication: Squamous cell carcinoma of the tongue
     Dosage: DOSAGE TEXT: RECEIVED 2 CYCLES OF CHEMOTHERAPY
     Route: 065

REACTIONS (1)
  - Pharyngeal perforation [Recovered/Resolved]
